FAERS Safety Report 13215962 (Version 2)
Quarter: 2017Q1

REPORT INFORMATION
  Report Type: Spontaneous
  Country: US (occurrence: US)
  Receive Date: 20170209
  Receipt Date: 20170302
  Transmission Date: 20170428
  Serious: Yes (Other)
  Sender: FDA-Public Use
  Company Number: US-BAXTER-2017BAX005143

PATIENT

DRUGS (3)
  1. 10% DEXTROSE INJECTION, USP [Suspect]
     Active Substance: DEXTROSE
     Indication: PRODUCT USED FOR UNKNOWN INDICATION
     Dosage: USING MEDFUSION PUMP
     Route: 040
  2. 10% DEXTROSE INJECTION, USP [Suspect]
     Active Substance: DEXTROSE
     Dosage: USING AN ALARIS PUMP
     Route: 065
     Dates: end: 2017
  3. 10% DEXTROSE INJECTION, USP [Suspect]
     Active Substance: DEXTROSE
     Dosage: DOSE RE-INTRODUCED
     Route: 065
     Dates: start: 2017

REACTIONS (1)
  - Blood glucose increased [Recovered/Resolved]

NARRATIVE: CASE EVENT DATE: 201701
